FAERS Safety Report 5993310-8 (Version None)
Quarter: 2008Q4

REPORT INFORMATION
  Report Type: 
  Country: None (occurrence: None)
  Receive Date: 20081210
  Receipt Date: 20081210
  Transmission Date: 20090506
  Serious: Yes (Life-Threatening, Other)
  Sender: FDA-Public Use
  Company Number: None

PATIENT
  Age: 23 Year
  Sex: Male
  Weight: 77.1115 kg

DRUGS (2)
  1. LITHIUM CARBONATE [Suspect]
  2. IN GENERAL, PSYCHOTROPIC HAVE RUINED MY LIFE. PLEASE GET RID OF THE PH [Suspect]

REACTIONS (2)
  - ADOPTION [None]
  - SUICIDE ATTEMPT [None]
